FAERS Safety Report 6103578-5 (Version None)
Quarter: 2009Q1

REPORT INFORMATION
  Report Type: 
  Country: None (occurrence: None)
  Receive Date: 20090305
  Receipt Date: 20090225
  Transmission Date: 20090719
  Serious: Yes (Hospitalization)
  Sender: FDA-Public Use
  Company Number: IT-ROCHE-610504

PATIENT
  Sex: Female

DRUGS (1)
  1. TORADOL [Suspect]
     Dosage: STRENGTH AND FORMULATION: 1 POS UNIT, DOSAGE REGIMEN: DIE.
     Route: 030
     Dates: start: 20081113, end: 20081113

REACTIONS (3)
  - ALTERED STATE OF CONSCIOUSNESS [None]
  - SYNCOPE [None]
  - VOMITING [None]
